FAERS Safety Report 7750831-5 (Version None)
Quarter: 2011Q3

REPORT INFORMATION
  Report Type: 
  Country: None (occurrence: None)
  Receive Date: 20110914
  Receipt Date: 20110909
  Transmission Date: 20111222
  Serious: Yes (Other)
  Sender: FDA-Public Use
  Company Number: US-ABBOTT-11P-163-0847079-00

PATIENT
  Sex: Female
  Weight: 78.996 kg

DRUGS (1)
  1. HUMIRA [Suspect]
     Indication: PSORIASIS
     Dates: start: 20110501, end: 20110701

REACTIONS (4)
  - HYPOTENSION [None]
  - PULMONARY EMBOLISM [None]
  - HYPOXIA [None]
  - LUMBAR RADICULOPATHY [None]
